FAERS Safety Report 5831280-3 (Version None)
Quarter: 2008Q3

REPORT INFORMATION
  Report Type: 
  Country: None (occurrence: None)
  Receive Date: 20080801
  Receipt Date: 20080725
  Transmission Date: 20090109
  Serious: No
  Sender: FDA-Public Use
  Company Number: US-BOEHRINGER INGELHEIM GMBH, GERMANY-2008-BP-09213BP

PATIENT
  Sex: Female

DRUGS (4)
  1. SPIRIVA [Suspect]
     Indication: DYSPNOEA
     Route: 055
     Dates: start: 20070601
  2. ALBUTEROL [Concomitant]
     Indication: DYSPNOEA
  3. THYROID MEDICINE [Concomitant]
     Indication: HYPOTHYROIDISM
  4. ATENOLOL [Concomitant]
     Indication: PALPITATIONS

REACTIONS (1)
  - DYSPNOEA [None]
